FAERS Safety Report 8731634 (Version 2)
Quarter: 2012Q4

REPORT INFORMATION
  Report Type: Report from Study
  Country: US (occurrence: US)
  Receive Date: 20120820
  Receipt Date: 20120914
  Transmission Date: 20130627
  Serious: Yes (Death, Hospitalization)
  Sender: FDA-Public Use
  Company Number: US-ASTELLAS-2012US006919

PATIENT
  Age: 89 None
  Sex: Female

DRUGS (1)
  1. ERLOTINIB TABLET [Suspect]
     Indication: PANCREATIC CARCINOMA
     Dosage: 150 mg, UID/QD
     Route: 048
     Dates: start: 20120724

REACTIONS (2)
  - Incorrect dose administered [Unknown]
  - Pneumonia [Fatal]
